FAERS Safety Report 17751552 (Version 3)
Quarter: 2020Q4

REPORT INFORMATION
  Report Type: Spontaneous
  Country: US (occurrence: US)
  Receive Date: 20200506
  Receipt Date: 20201218
  Transmission Date: 20210113
  Serious: Yes (Other)
  Sender: FDA-Public Use
  Company Number: US-PFIZER INC-2020179654

PATIENT
  Age: 54 Year
  Sex: Female

DRUGS (1)
  1. LYRICA [Suspect]
     Active Substance: PREGABALIN
     Indication: PAIN
     Dosage: 200 MG, 2X/DAY (Q(EVERY)12H)
     Route: 048
     Dates: start: 20200507

REACTIONS (2)
  - Burning sensation [Unknown]
  - Systemic lupus erythematosus [Unknown]
